FAERS Safety Report 5092846-4 (Version None)
Quarter: 2006Q3

REPORT INFORMATION
  Report Type: 
  Country: None (occurrence: None)
  Receive Date: 20060727
  Receipt Date: 20060620
  Transmission Date: 20061208
  Serious: Yes (Other)
  Sender: FDA-Public Use
  Company Number: 2006074015

PATIENT
  Age: 39 Year
  Sex: Female
  Weight: 95.2554 kg

DRUGS (12)
  1. LYRICA [Suspect]
     Indication: NEUROPATHY
     Dosage: 150 MG (75 MG,2 IN 1 D)
     Dates: start: 20060101, end: 20060610
  2. RELPAX [Suspect]
     Indication: MIGRAINE
  3. TOPAMAX [Concomitant]
  4. COMPAZINE [Concomitant]
  5. ALL OTHER THERAPEUTIC PRODUCTS (ALL OTHER THERAPEUTIC PRODUCTS) [Concomitant]
  6. KLONOPIN [Concomitant]
  7. ROZEREM [Concomitant]
  8. LEXAPRO [Concomitant]
  9. OXYCODONE HCL [Concomitant]
  10. NASONEX [Concomitant]
  11. RESTORIL [Concomitant]
  12. ALEVE [Concomitant]

REACTIONS (9)
  - ACCIDENT [None]
  - ADVERSE EVENT [None]
  - CLUSTER HEADACHE [None]
  - DRUG INEFFECTIVE [None]
  - HEAD DISCOMFORT [None]
  - HEADACHE [None]
  - NEUROPATHY [None]
  - VISION BLURRED [None]
  - VISUAL DISTURBANCE [None]
